FAERS Safety Report 7768255-3 (Version None)
Quarter: 2011Q3

REPORT INFORMATION
  Report Type: 
  Country: None (occurrence: None)
  Receive Date: 20110922
  Receipt Date: 20100115
  Transmission Date: 20111222
  Serious: No
  Sender: FDA-Public Use
  Company Number: US-ASTRAZENECA-2009SE15637

PATIENT
  Age: 22422 Day
  Sex: Male
  Weight: 97.1 kg

DRUGS (7)
  1. BENICAR HCT [Concomitant]
     Dates: start: 20060101
  2. ZYDIS [Concomitant]
     Dates: start: 20060101
  3. VIAGRA [Concomitant]
     Dates: start: 20050101
  4. SEROQUEL [Suspect]
     Indication: DEPRESSION
     Dosage: 25-100 MG
     Route: 048
     Dates: start: 20050404
  5. ALPRAZOLAM [Concomitant]
  6. FLUVOXAMINE MALEATE [Concomitant]
     Dates: start: 20050101
  7. SEROQUEL [Suspect]
     Indication: INSOMNIA
     Dosage: 25-100 MG
     Route: 048
     Dates: start: 20050404

REACTIONS (3)
  - TYPE 2 DIABETES MELLITUS [None]
  - WEIGHT INCREASED [None]
  - OBESITY [None]
